FAERS Safety Report 4652622-0 (Version None)
Quarter: 2005Q2

REPORT INFORMATION
  Report Type: 
  Country: None (occurrence: None)
  Receive Date: 20050408
  Receipt Date: 20041223
  Transmission Date: 20051028
  Serious: No
  Sender: FDA-Public Use
  Company Number: 236161K04USA

PATIENT
  Age: 42 Year
  Sex: Male

DRUGS (4)
  1. REBIF [Suspect]
     Indication: MULTIPLE SCLEROSIS
     Dates: start: 20021113
  2. ADDERALL (OBETROL) [Concomitant]
  3. PROVIGIL [Concomitant]
  4. SLEEPING PILL (ALL OTHER THERAPEUTIC PRODUCTS) [Concomitant]

REACTIONS (1)
  - RHINORRHOEA [None]
